FAERS Safety Report 8713571 (Version 4)
Quarter: 2012Q4

REPORT INFORMATION
  Report Type: 
  Country: US (occurrence: US)
  Receive Date: 20120808
  Receipt Date: 20121121
  Transmission Date: 20130627
  Serious: Yes (Hospitalization)
  Sender: FDA-Public Use
  Company Number: US-ACTELION-A-US2012-69586

PATIENT
  Age: 70 Year
  Sex: Male

DRUGS (5)
  1. TRACLEER [Suspect]
     Indication: PULMONARY ARTERIAL HYPERTENSION
     Dosage: UNK
     Route: 048
  2. GENTAMYCIN [Suspect]
  3. PRADAXA [Concomitant]
  4. SILDENAFIL [Concomitant]
     Indication: PULMONARY ARTERIAL HYPERTENSION
  5. PRADAXA [Concomitant]

REACTIONS (3)
  - Renal failure [Recovering/Resolving]
  - Bacteraemia [Unknown]
  - Cardiac disorder [Unknown]
